FAERS Safety Report 5678429-3 (Version None)
Quarter: 2008Q1

REPORT INFORMATION
  Report Type: 
  Country: None (occurrence: None)
  Receive Date: 20080320
  Receipt Date: 20080306
  Transmission Date: 20080703
  Serious: Yes (Other)
  Sender: FDA-Public Use
  Company Number: VNL_00991_2008

PATIENT
  Sex: Female

DRUGS (1)
  1. APO-GO (APO-GO PFS 5 MG/ML SOLUTION FOR INFUSION IN PRE-FILLED SYRINGE [Suspect]
     Indication: DRUG USE FOR UNKNOWN INDICATION
     Dosage: (DF SUBCUTANEOUS)
     Route: 058

REACTIONS (1)
  - APLASTIC ANAEMIA [None]
